FAERS Safety Report 6397499-0 (Version None)
Quarter: 2009Q4

REPORT INFORMATION
  Report Type: 
  Country: None (occurrence: None)
  Receive Date: 20091012
  Receipt Date: 20091007
  Transmission Date: 20100525
  Serious: Yes (Hospitalization)
  Sender: FDA-Public Use
  Company Number: FR-BRISTOL-MYERS SQUIBB COMPANY-14810295

PATIENT
  Age: 75 Year
  Sex: Female

DRUGS (11)
  1. APROVEL TABS 300 MG [Suspect]
     Indication: HYPERTENSION
     Dosage: 1 DF = 1 TAB
     Route: 048
     Dates: end: 20090510
  2. METFORMIN HCL [Suspect]
     Indication: DIABETES MELLITUS
     Route: 048
     Dates: end: 20090510
  3. ENALAPRIL MALEATE [Suspect]
     Indication: HYPERTENSION
     Dosage: INTERRUPTED ON 10MAY09
     Route: 048
  4. GENTAMICIN [Suspect]
     Indication: URINARY TRACT INFECTION
     Route: 042
     Dates: start: 20090416, end: 20090507
  5. LASILIX [Suspect]
     Indication: HYPERTENSION
     Route: 048
     Dates: end: 20090510
  6. PLAVIX [Suspect]
     Indication: PROPHYLAXIS
     Route: 048
     Dates: end: 20090510
  7. DI-ANTALVIC [Suspect]
     Indication: PAIN
     Route: 048
     Dates: end: 20090510
  8. TAHOR [Suspect]
     Dosage: INTERRUPTED ON 10MAY2009
     Route: 048
     Dates: end: 20090510
  9. METHOTREXATE [Suspect]
     Indication: MUSCULOSKELETAL PAIN
     Route: 042
     Dates: end: 20090510
  10. ALLOPURINOL [Suspect]
     Indication: HYPERURICAEMIA
     Route: 048
     Dates: end: 20090510
  11. CIFLOX [Suspect]
     Indication: URINARY TRACT INFECTION
     Route: 048
     Dates: start: 20090416, end: 20090507

REACTIONS (1)
  - RENAL FAILURE ACUTE [None]
